FAERS Safety Report 12158037 (Version 1)
Quarter: 2016Q1

REPORT INFORMATION
  Report Type: Spontaneous
  Country: US (occurrence: US)
  Receive Date: 20160308
  Receipt Date: 20160308
  Transmission Date: 20160526
  Serious: No
  Sender: FDA-Public Use
  Company Number: US-JNJFOC-20150204048

PATIENT
  Age: 49 Year
  Sex: Male

DRUGS (10)
  1. LYRICA [Concomitant]
     Active Substance: PREGABALIN
  2. AMBIEN [Concomitant]
     Active Substance: ZOLPIDEM TARTRATE
  3. HUMULIN I [Concomitant]
     Active Substance: INSULIN HUMAN
  4. METOPROLOL. [Concomitant]
     Active Substance: METOPROLOL
  5. ALLOPURINOL. [Concomitant]
     Active Substance: ALLOPURINOL
     Indication: GOUT
  6. LEVOTHYROXINE. [Concomitant]
     Active Substance: LEVOTHYROXINE
  7. FLUCONAZOLE. [Concomitant]
     Active Substance: FLUCONAZOLE
     Indication: HISTOPLASMOSIS
  8. ATORVASTATIN [Concomitant]
     Active Substance: ATORVASTATIN
  9. IMBRUVICA [Suspect]
     Active Substance: IBRUTINIB
     Indication: CHRONIC LYMPHOCYTIC LEUKAEMIA
     Route: 048
     Dates: start: 20150111
  10. FUROSEMIDE. [Concomitant]
     Active Substance: FUROSEMIDE

REACTIONS (2)
  - Gout [Recovered/Resolved]
  - Arthralgia [Not Recovered/Not Resolved]

NARRATIVE: CASE EVENT DATE: 201501
